FAERS Safety Report 4635019-9 (Version None)
Quarter: 2005Q2

REPORT INFORMATION
  Report Type: 
  Country: None (occurrence: None)
  Receive Date: 20050414
  Receipt Date: 20050401
  Transmission Date: 20051028
  Serious: Yes (Hospitalization, Other)
  Sender: FDA-Public Use
  Company Number: GB-JNJFOC-20050400711

PATIENT
  Sex: Female
  Weight: 50 kg

DRUGS (7)
  1. REMICADE [Suspect]
     Indication: RHEUMATOID ARTHRITIS
     Route: 042
  2. ADALIMUMAB [Concomitant]
  3. FOLIC ACID [Concomitant]
  4. TRAMADOL HCL [Concomitant]
  5. PREDNISOLONE [Concomitant]
  6. CONTRACEPTIVE PILL [Concomitant]
  7. METHOTREXATE [Concomitant]

REACTIONS (3)
  - ARTHRALGIA [None]
  - HEADACHE [None]
  - MALAISE [None]
